FAERS Safety Report 4463356-X (Version None)
Quarter: 2004Q3

REPORT INFORMATION
  Report Type: 
  Country: None (occurrence: None)
  Receive Date: 20040928
  Receipt Date: 20040915
  Transmission Date: 20050211
  Serious: Yes (Death, Hospitalization)
  Sender: FDA-Public Use
  Company Number: 02100-JPN-04-0166

PATIENT
  Age: 71 Year
  Sex: Male

DRUGS (12)
  1. CILOSTAZOL [Suspect]
     Indication: CEREBRAL INFARCTION
     Dosage: 200 MG , ORAL
     Route: 048
     Dates: start: 20031006, end: 20031022
  2. CILOSTAZOL [Suspect]
     Indication: CEREBRAL INFARCTION
     Dosage: 200 MG , ORAL
     Route: 048
     Dates: start: 20030101, end: 20040617
  3. ASPIRIN [Suspect]
     Indication: CEREBRAL INFARCTION
     Dosage: 100 MG, ORAL
     Route: 048
     Dates: start: 20030101, end: 20040617
  4. ASPIRIN [Concomitant]
  5. OZAGREL SODIUM [Concomitant]
  6. ISOTONIC SODIUM CHLORIDE SOLUTION [Concomitant]
  7. LOXOPROFEN SODIUM [Concomitant]
  8. TEPRENONE [Concomitant]
  9. CARBOCISTEINE [Concomitant]
  10. PROCATEROL HCL [Concomitant]
  11. TAMSULOSIN HYDROCHLORIDE [Concomitant]
  12. FAMOTIDINE [Concomitant]

REACTIONS (18)
  - ACTIVATED PARTIAL THROMBOPLASTIN TIME PROLONGED [None]
  - BLOOD PRESSURE DECREASED [None]
  - BLOOD PRESSURE INCREASED [None]
  - BRAIN HERNIATION [None]
  - CEREBRAL HAEMORRHAGE [None]
  - DRUG INTERACTION [None]
  - DYSKINESIA [None]
  - FALL [None]
  - FEELING COLD [None]
  - HAEMATOCRIT DECREASED [None]
  - HAEMOGLOBIN DECREASED [None]
  - LOSS OF CONSCIOUSNESS [None]
  - NAUSEA [None]
  - PUPILS UNEQUAL [None]
  - RED BLOOD CELL COUNT DECREASED [None]
  - RESPIRATORY DISORDER [None]
  - VOMITING [None]
  - WHITE BLOOD CELL COUNT INCREASED [None]
